FAERS Safety Report 8771382 (Version 2)
Quarter: 2012Q4

REPORT INFORMATION
  Report Type: 
  Country: DE (occurrence: DE)
  Receive Date: 20120905
  Receipt Date: 20120917
  Transmission Date: 20130627
  Serious: Yes (Hospitalization, Other)
  Sender: FDA-Public Use
  Company Number: DE-ASTRAZENECA-2012SE65539

PATIENT
  Sex: Male
  Weight: 90 kg

DRUGS (15)
  1. BRILIQUE [Suspect]
     Indication: MYOCARDIAL INFARCTION
     Route: 048
  2. BRILIQUE [Suspect]
     Indication: STENT PLACEMENT
     Route: 048
  3. BRILIQUE [Suspect]
     Indication: CORONARY ARTERY DISEASE
     Route: 048
  4. BISOPROLOL [Concomitant]
     Indication: MYOCARDIAL INFARCTION
     Route: 048
  5. BISOPROLOL [Concomitant]
     Indication: STENT PLACEMENT
     Route: 048
  6. BISOPROLOL [Concomitant]
     Indication: CORONARY ARTERY DISEASE
     Route: 048
  7. SIMVASTATIN [Concomitant]
     Indication: MYOCARDIAL INFARCTION
     Route: 048
  8. SIMVASTATIN [Concomitant]
     Indication: STENT PLACEMENT
     Route: 048
  9. SIMVASTATIN [Concomitant]
     Indication: CORONARY ARTERY DISEASE
     Route: 048
  10. DIOVAN [Concomitant]
     Indication: MYOCARDIAL INFARCTION
     Route: 048
  11. DIOVAN [Concomitant]
     Indication: STENT PLACEMENT
     Route: 048
  12. DIOVAN [Concomitant]
     Indication: CORONARY ARTERY DISEASE
     Route: 048
  13. ASS [Concomitant]
     Indication: MYOCARDIAL INFARCTION
     Route: 048
  14. ASS [Concomitant]
     Indication: STENT PLACEMENT
     Route: 048
  15. ASS [Concomitant]
     Indication: CORONARY ARTERY DISEASE
     Route: 048

REACTIONS (1)
  - Thrombocytopenia [Unknown]
